FAERS Safety Report 11791779 (Version 4)
Quarter: 2016Q1

REPORT INFORMATION
  Report Type: Report from Study
  Country: SG (occurrence: SG)
  Receive Date: 20151201
  Receipt Date: 20160120
  Transmission Date: 20160525
  Serious: Yes (Hospitalization)
  Sender: FDA-Public Use
  Company Number: SG-PFIZER INC-2015398782

PATIENT
  Age: 45 Year
  Sex: Female

DRUGS (8)
  1. METOCLOPRAMIDE. [Concomitant]
     Active Substance: METOCLOPRAMIDE
     Dosage: 10 MG, 3X/DAY
     Route: 048
     Dates: start: 20151009
  2. BOSUTINIB [Suspect]
     Active Substance: BOSUTINIB
     Dosage: 300 MG, DAILY
     Route: 048
     Dates: start: 20150806, end: 20150821
  3. FERROUS FUMARATE [Concomitant]
     Active Substance: FERROUS FUMARATE
     Indication: ANAEMIA
     Dosage: 400 MG, DAILY
     Route: 048
     Dates: start: 20150804
  4. BOSUTINIB [Suspect]
     Active Substance: BOSUTINIB
     Indication: CHRONIC MYELOID LEUKAEMIA
     Dosage: 400 MG, 1X/DAY
     Route: 048
     Dates: start: 20150720, end: 20150728
  5. ATENOLOL. [Concomitant]
     Active Substance: ATENOLOL
     Indication: SUPRAVENTRICULAR TACHYCARDIA
     Dosage: 25 MG, DAILY
     Route: 048
     Dates: start: 20150803
  6. CALCIUM CARBONATE W/VITAMIN D NOS [Concomitant]
     Active Substance: CALCIUM CARBONATE\VITAMIN D
     Indication: HYPOVITAMINOSIS
     Dosage: 2 DF, DAILY
     Route: 048
     Dates: start: 20150731
  7. BOSUTINIB [Suspect]
     Active Substance: BOSUTINIB
     Dosage: 400 MG, DAILY
     Route: 048
     Dates: start: 20150822, end: 20151205
  8. PARACETAMOL [Concomitant]
     Active Substance: ACETAMINOPHEN
     Dosage: 1000 MG, 4X/DAY
     Route: 048
     Dates: start: 20150730

REACTIONS (2)
  - Colon cancer [Recovering/Resolving]
  - Second primary malignancy [Recovering/Resolving]

NARRATIVE: CASE EVENT DATE: 20151104
